FAERS Safety Report 18223796 (Version 1)
Quarter: 2020Q3

REPORT INFORMATION
  Report Type: Spontaneous
  Country: KR (occurrence: KR)
  Receive Date: 20200902
  Receipt Date: 20200902
  Transmission Date: 20201103
  Serious: Yes (Other)
  Sender: FDA-Public Use
  Company Number: KR-EISAI MEDICAL RESEARCH-EC-2020-079578

PATIENT
  Sex: Female

DRUGS (2)
  1. KEYTRUDA [Suspect]
     Active Substance: PEMBROLIZUMAB
     Indication: ENDOMETRIAL CANCER
     Dosage: DOSAGE AND FREQUENCY UNKNOWN
     Route: 042
     Dates: start: 20190618
  2. LENVIMA [Suspect]
     Active Substance: LENVATINIB
     Indication: ENDOMETRIAL CANCER
     Dosage: DOSAGE AND FREQUENCY UNKNOWN
     Route: 048
     Dates: start: 20190618

REACTIONS (8)
  - Anterior segment ischaemia [Unknown]
  - Hyperbilirubinaemia [Unknown]
  - Electrocardiogram T wave abnormal [Unknown]
  - Electrocardiogram ST-T segment abnormal [Unknown]
  - Blood pressure increased [Unknown]
  - Chest pain [Unknown]
  - Dyspepsia [Unknown]
  - Product use in unapproved indication [Unknown]
